FAERS Safety Report 21988221 (Version 2)
Quarter: 2023Q1

REPORT INFORMATION
  Report Type: Other
  Country: US (occurrence: None)
  Receive Date: 20230214
  Receipt Date: 20230215
  Transmission Date: 20230417
  Serious: Yes (Death)
  Sender: FDA-Public Use
  Company Number: US-ROCHE-3283048

PATIENT
  Age: 81 Year
  Sex: Male

DRUGS (3)
  1. HERCEPTIN [Suspect]
     Active Substance: TRASTUZUMAB
     Indication: Malignant neoplasm of unknown primary site
     Dosage: INFUSE 380MG INTRAVENOUSLY EVERY 21 DAY(S)
     Route: 042
     Dates: start: 20221222
  2. HERCEPTIN [Suspect]
     Active Substance: TRASTUZUMAB
     Indication: Malignant lymphoid neoplasm
  3. HERCEPTIN [Suspect]
     Active Substance: TRASTUZUMAB
     Indication: Lung neoplasm malignant

REACTIONS (2)
  - Death [Fatal]
  - Off label use [Unknown]
